FAERS Safety Report 16162902 (Version 3)
Quarter: 2022Q4

REPORT INFORMATION
  Report Type: Report from Study
  Country: CZ (occurrence: None)
  Receive Date: 20190405
  Receipt Date: 20221018
  Transmission Date: 20230113
  Serious: Yes (Hospitalization)
  Sender: FDA-Public Use
  Company Number: CZ-ROCHE-2274663

PATIENT
  Age: 65 Year
  Sex: Male
  Weight: 95 kg

DRUGS (8)
  1. ATEZOLIZUMAB [Suspect]
     Active Substance: ATEZOLIZUMAB
     Indication: Metastatic renal cell carcinoma
     Dosage: MOST RECENT DOSE OF BLINDED ATEZOLIZUMAB: 05/FEB/2019 AT 11:50
     Route: 041
     Dates: start: 20180820
  2. WARFARIN [Concomitant]
     Active Substance: WARFARIN
     Indication: Atrial fibrillation
     Dosage: FOR NOT FOR RENAL CELL CARCINOMA
     Route: 048
     Dates: start: 20180716, end: 20210531
  3. NEOTIGASON [Concomitant]
     Active Substance: ACITRETIN
     Indication: Psoriasis
     Route: 048
     Dates: start: 20190306, end: 20201106
  4. NIMESULIDE [Concomitant]
     Active Substance: NIMESULIDE
     Route: 048
     Dates: start: 20190225, end: 20201106
  5. CLOBEX [Concomitant]
     Active Substance: CLOBETASOL PROPIONATE
     Dosage: 500 OTHER
     Route: 061
     Dates: start: 20190205, end: 20201106
  6. CLOBETASOL [Concomitant]
     Active Substance: CLOBETASOL
     Indication: Psoriasis
     Route: 061
     Dates: start: 20190205, end: 20201106
  7. MOMETASONE FUROATE [Concomitant]
     Active Substance: MOMETASONE FUROATE
     Indication: Psoriasis
     Route: 061
     Dates: start: 20190205, end: 20201106
  8. FEXOFENADINE HYDROCHLORIDE [Concomitant]
     Active Substance: FEXOFENADINE HYDROCHLORIDE
     Indication: Psoriasis
     Route: 048
     Dates: start: 20190306, end: 20201106

REACTIONS (1)
  - Dermatitis psoriasiform [Recovered/Resolved]

NARRATIVE: CASE EVENT DATE: 20190226
